FAERS Safety Report 5505198-X (Version None)
Quarter: 2007Q4

REPORT INFORMATION
  Report Type: 
  Country: None (occurrence: None)
  Receive Date: 20071102
  Receipt Date: 20071025
  Transmission Date: 20080405
  Serious: Yes (Other)
  Sender: FDA-Public Use
  Company Number: US-ASTRAZENECA-2007UW14915

PATIENT
  Age: 15887 Day
  Sex: Female
  Weight: 63.6 kg

DRUGS (1)
  1. SEROQUEL [Suspect]
     Dosage: 25 - 50 MG; QD - BID
     Route: 048
     Dates: start: 20041201, end: 20060528

REACTIONS (4)
  - HEPATOMEGALY [None]
  - PANCREATIC DISORDER [None]
  - RENAL DISORDER [None]
  - TYPE 2 DIABETES MELLITUS [None]
